FAERS Safety Report 12309997 (Version 2)
Quarter: 2016Q2

REPORT INFORMATION
  Report Type: Spontaneous
  Country: JP (occurrence: JP)
  Receive Date: 20160427
  Receipt Date: 20160519
  Transmission Date: 20160815
  Serious: Yes (Disabling, Other)
  Sender: FDA-Public Use
  Company Number: JP-ROCHE-1748683

PATIENT
  Age: 66 Year
  Sex: Female

DRUGS (2)
  1. HOCHUEKKITO [Concomitant]
     Active Substance: HERBALS
     Indication: INFLUENZA
     Route: 048
     Dates: start: 20160212
  2. TAMIFLU [Suspect]
     Active Substance: OSELTAMIVIR PHOSPHATE
     Indication: INFLUENZA
     Route: 048
     Dates: start: 20160212, end: 20160216

REACTIONS (7)
  - Hallucination [Recovering/Resolving]
  - Decreased appetite [Recovering/Resolving]
  - Depressed level of consciousness [Recovering/Resolving]
  - Memory impairment [Recovering/Resolving]
  - Hot flush [Unknown]
  - Incoherent [Recovered/Resolved with Sequelae]
  - Loss of consciousness [Recovering/Resolving]

NARRATIVE: CASE EVENT DATE: 20160212
